FAERS Safety Report 25223110 (Version 1)
Quarter: 2025Q2

REPORT INFORMATION
  Report Type: Spontaneous
  Country: US (occurrence: US)
  Receive Date: 20250422
  Receipt Date: 20250422
  Transmission Date: 20250717
  Serious: Yes (Hospitalization)
  Sender: FRESENIUS KABI
  Company Number: US-FreseniusKabi-FK202505402

PATIENT
  Age: 20 Year
  Sex: Female
  Weight: 59.9 kg

DRUGS (6)
  1. VINBLASTINE [Suspect]
     Active Substance: VINBLASTINE
     Indication: Hodgkin^s disease
     Dosage: THERAPY ONGOING?CYCLIC
     Route: 042
     Dates: start: 20250306
  2. BRENTUXIMAB VEDOTIN [Suspect]
     Active Substance: BRENTUXIMAB VEDOTIN
     Indication: Hodgkin^s disease
     Dosage: THERAPY ONGOING?CYCLIC
     Route: 042
     Dates: start: 20250306
  3. DOXORUBICIN HYDROCHLORIDE [Suspect]
     Active Substance: DOXORUBICIN HYDROCHLORIDE
     Indication: Hodgkin^s disease
     Dosage: THERAPY ONGOING?CYCLIC
     Route: 042
     Dates: start: 20250306
  4. DACARBAZINE [Suspect]
     Active Substance: DACARBAZINE
     Indication: Hodgkin^s disease
     Dosage: THERAPY ONGOING?CYCLIC
     Route: 042
     Dates: start: 20250306
  5. ONDANSETRON [Concomitant]
     Active Substance: ONDANSETRON
     Indication: Nausea
     Route: 048
     Dates: start: 20250306
  6. ONDANSETRON [Concomitant]
     Active Substance: ONDANSETRON
     Indication: Vomiting

REACTIONS (3)
  - Febrile neutropenia [Recovered/Resolved]
  - Bone pain [Unknown]
  - Constipation [Unknown]

NARRATIVE: CASE EVENT DATE: 20250325
